FAERS Safety Report 15888933 (Version 1)
Quarter: 2019Q1

REPORT INFORMATION
  Report Type: Spontaneous
  Country: US (occurrence: US)
  Receive Date: 20190129
  Receipt Date: 20190129
  Transmission Date: 20190417
  Serious: Yes (Other)
  Sender: FDA-Public Use
  Company Number: None

PATIENT
  Age: 51 Year
  Sex: Female
  Weight: 62.1 kg

DRUGS (1)
  1. CERTAIN DRI AM ROLL-ON [Suspect]
     Active Substance: ALUMINUM ZIRCONIUM TETRACHLOROHYDREX GLY
     Indication: HYPERHIDROSIS
     Dosage: ?          OTHER STRENGTH:CLINICAL STRENGTH;QUANTITY:12 OUNCE(S);?
     Route: 061
     Dates: start: 20170615, end: 20170913

REACTIONS (5)
  - Application site scab [None]
  - Application site discolouration [None]
  - Application site rash [None]
  - Application site pain [None]
  - Application site scar [None]

NARRATIVE: CASE EVENT DATE: 20170615
